FAERS Safety Report 18309181 (Version 2)
Quarter: 2020Q4

REPORT INFORMATION
  Report Type: Spontaneous
  Country: PT (occurrence: PT)
  Receive Date: 20200925
  Receipt Date: 20201008
  Transmission Date: 20210113
  Serious: Yes (Hospitalization, Other)
  Sender: FDA-Public Use
  Company Number: PT-AUROBINDO-AUR-APL-2020-049347

PATIENT
  Age: 65 Year
  Sex: Male

DRUGS (1)
  1. AMOXICILLIN+CLAVULANIC ACID [Suspect]
     Active Substance: AMOXICILLIN\CLAVULANIC ACID
     Indication: TRACHEOBRONCHITIS
     Dosage: UNK
     Route: 065

REACTIONS (6)
  - Neutrophilia [Unknown]
  - Leukocytosis [Unknown]
  - Skin lesion [Unknown]
  - Off label use [Unknown]
  - Acute febrile neutrophilic dermatosis [Recovered/Resolved]
  - C-reactive protein increased [Unknown]
